FAERS Safety Report 21408230 (Version 2)
Quarter: 2022Q4

REPORT INFORMATION
  Report Type: Spontaneous
  Country: MA (occurrence: MA)
  Receive Date: 20221004
  Receipt Date: 20221013
  Transmission Date: 20230113
  Serious: Yes (Hospitalization, Other)
  Sender: FDA-Public Use
  Company Number: MA-INSUD PHARMA-2209MA03952

PATIENT

DRUGS (1)
  1. ACYCLOVIR [Suspect]
     Active Substance: ACYCLOVIR
     Indication: Herpes zoster
     Dosage: 1 GRAM, UNK
     Route: 042

REACTIONS (4)
  - Acute kidney injury [Recovering/Resolving]
  - Back pain [Recovering/Resolving]
  - Blood urine present [Recovering/Resolving]
  - Oliguria [Recovering/Resolving]
